FAERS Safety Report 17196379 (Version 1)
Quarter: 2019Q4

REPORT INFORMATION
  Report Type: Spontaneous
  Country: SE (occurrence: SE)
  Receive Date: 20191224
  Receipt Date: 20191224
  Transmission Date: 20200122
  Serious: Yes (Other)
  Sender: FDA-Public Use
  Company Number: SE-TOPROL ACQUISITION LLC-2019-TOP-001623

PATIENT
  Age: 79 Year
  Sex: Female

DRUGS (5)
  1. METOPROLOL SUCCINATE. [Suspect]
     Active Substance: METOPROLOL SUCCINATE
     Indication: PRODUCT USED FOR UNKNOWN INDICATION
     Dosage: 50 MG, BID
     Route: 048
  2. LEVAXIN [Concomitant]
     Active Substance: LEVOTHYROXINE SODIUM
  3. CALCIUM [Concomitant]
     Active Substance: CALCIUM
  4. CLARITIN [Concomitant]
     Active Substance: LORATADINE
  5. METOPROLOL SUCCINATE. [Suspect]
     Active Substance: METOPROLOL SUCCINATE
     Dosage: 100 MG UNK
     Route: 048

REACTIONS (8)
  - Cardiac disorder [Unknown]
  - Product packaging quantity issue [Unknown]
  - Osteoporosis [Unknown]
  - Wrong strength [Unknown]
  - Dizziness [Unknown]
  - Hypersensitivity [Unknown]
  - Dyspnoea [Unknown]
  - Fatigue [Unknown]
